FAERS Safety Report 18631689 (Version 1)
Quarter: 2020Q4

REPORT INFORMATION
  Report Type: Spontaneous
  Country: US (occurrence: US)
  Receive Date: 20201217
  Receipt Date: 20201217
  Transmission Date: 20210114
  Serious: No
  Sender: FDA-Public Use
  Company Number: US-ENDO PHARMACEUTICALS INC-2020-005036

PATIENT
  Age: 49 Year
  Sex: Male

DRUGS (5)
  1. XIAFLEX [Suspect]
     Active Substance: COLLAGENASE CLOSTRIDIUM HISTOLYTICUM
     Indication: PEYRONIE^S DISEASE
     Dosage: 0.9 MG, UNKNOWN (CYCLE 3, INJECTION 2)
     Route: 065
     Dates: start: 20201008
  2. XIAFLEX [Suspect]
     Active Substance: COLLAGENASE CLOSTRIDIUM HISTOLYTICUM
     Dosage: 0.9 MG, UNKNOWN (CYCLE 3, INJECTION 1)
     Route: 065
     Dates: start: 20200930
  3. XIAFLEX [Suspect]
     Active Substance: COLLAGENASE CLOSTRIDIUM HISTOLYTICUM
     Dosage: 0.9 MG, UNKNOWN (CYCLE 2, INJECTION 1 AND 2)
     Route: 065
     Dates: start: 2020
  4. XIAFLEX [Suspect]
     Active Substance: COLLAGENASE CLOSTRIDIUM HISTOLYTICUM
     Dosage: 0.9 MG, UNKNOWN (CYCLE 1, INJECTION 2)
     Route: 065
     Dates: start: 2020
  5. XIAFLEX [Suspect]
     Active Substance: COLLAGENASE CLOSTRIDIUM HISTOLYTICUM
     Dosage: 0.9 MG, UNKNOWN (CYCLE 1, INJECTION 1)
     Route: 065
     Dates: start: 20200706

REACTIONS (6)
  - Penile swelling [Not Recovered/Not Resolved]
  - Inappropriate schedule of product administration [Unknown]
  - Penile contusion [Not Recovered/Not Resolved]
  - Drug ineffective [Unknown]
  - Injection site bruising [Unknown]
  - Injection site swelling [Unknown]

NARRATIVE: CASE EVENT DATE: 202007
